FAERS Safety Report 9199594 (Version 2)
Quarter: 2013Q2

REPORT INFORMATION
  Report Type: Spontaneous
  Country: FR (occurrence: FR)
  Receive Date: 20130329
  Receipt Date: 20130621
  Transmission Date: 20140414
  Serious: Yes (Hospitalization)
  Sender: FDA-Public Use
  Company Number: FR-PFIZER INC-2013098538

PATIENT
  Age: 49 Year
  Sex: Female

DRUGS (5)
  1. CHAMPIX [Suspect]
     Indication: EX-TOBACCO USER
     Dosage: 0.5 MG, 1X/DAY
     Route: 048
     Dates: start: 20121123, end: 20121125
  2. CHAMPIX [Suspect]
     Dosage: 0.5 MG, 2X/DAY
     Dates: start: 20121126, end: 20121129
  3. CHAMPIX [Suspect]
     Dosage: 1 MG, 2X/DAY
     Dates: start: 20121130, end: 20130115
  4. CHAMPIX [Suspect]
     Dosage: 1 MG, 1X/DAY
     Dates: start: 20130116, end: 20130314
  5. CHAMPIX [Suspect]
     Dosage: 0.5 MG, 1X/DAY
     Dates: start: 20130315, end: 20130422

REACTIONS (9)
  - Hypertension [Not Recovered/Not Resolved]
  - Aggression [Recovered/Resolved]
  - Aggression [Recovered/Resolved]
  - Burn oesophageal [Recovered/Resolved]
  - Abdominal pain upper [Recovering/Resolving]
  - Nausea [Recovering/Resolving]
  - Headache [Recovered/Resolved]
  - Muscle spasms [Recovered/Resolved]
  - Gastritis erosive [Unknown]
